FAERS Safety Report 5413656-1 (Version None)
Quarter: 2007Q3

REPORT INFORMATION
  Report Type: 
  Country: None (occurrence: None)
  Receive Date: 20070810
  Receipt Date: 20070731
  Transmission Date: 20080115
  Serious: Yes (Hospitalization)
  Sender: FDA-Public Use
  Company Number: 2007-162138-NL

PATIENT
  Age: 33 Year
  Sex: Female

DRUGS (1)
  1. ETONOGESTREL [Suspect]
     Dosage: DF

REACTIONS (4)
  - MENORRHAGIA [None]
  - RED BLOOD CELL ABNORMALITY [None]
  - UTERINE HAEMORRHAGE [None]
  - VITAMIN B12 DEFICIENCY [None]
